FAERS Safety Report 4897355-0 (Version None)
Quarter: 2005Q4

REPORT INFORMATION
  Report Type: 
  Country: None (occurrence: None)
  Receive Date: 20051223
  Receipt Date: 20051103
  Transmission Date: 20060501
  Serious: No
  Sender: FDA-Public Use
  Company Number: 05P-163-0316505-00

PATIENT
  Age: 54 Year
  Sex: Male
  Weight: 104.5 kg

DRUGS (14)
  1. HUMIRA [Suspect]
     Indication: RHEUMATOID ARTHRITIS
     Dosage: 40 MG, 1 IN 2 WK, SUBCUTANEOUS
     Route: 058
     Dates: start: 20051020
  2. METHOTREXATE [Concomitant]
  3. FOLIC ACID [Concomitant]
  4. IRON [Concomitant]
  5. LEVOTHYROXINE SODIUM [Concomitant]
  6. ESOMEPRAZOLE [Concomitant]
  7. PREDNISONE [Concomitant]
  8. PAROXETINE HYDROCHLORIDE [Concomitant]
  9. ZOLPIDEM TARTRATE [Concomitant]
  10. IBUPROFEN [Concomitant]
  11. PREGAMAL [Concomitant]
  12. MULTIVITAMIN [Concomitant]
  13. PYRIDOXINE HYDROCHLORIDE INJ [Concomitant]
  14. HYDROXYCHLOROQUINE PHOSPHATE [Concomitant]

REACTIONS (1)
  - HERPES ZOSTER [None]
